FAERS Safety Report 18968132 (Version 2)
Quarter: 2021Q1

REPORT INFORMATION
  Report Type: Spontaneous
  Country: KR (occurrence: KR)
  Receive Date: 20210304
  Receipt Date: 20210317
  Transmission Date: 20210420
  Serious: Yes (Other)
  Sender: FDA-Public Use
  Company Number: KR-GLAXOSMITHKLINE-KR2021APC053474

PATIENT
  Sex: Female

DRUGS (6)
  1. REQUIP PD 24 HOUR [Suspect]
     Active Substance: ROPINIROLE HYDROCHLORIDE
     Dosage: 8 MG
     Dates: start: 20210127, end: 20210224
  2. PERKIN [Suspect]
     Active Substance: CARBIDOPA\LEVODOPA
     Indication: PARKINSONISM
     Dosage: UNK
  3. REQUIP PD 24 HOUR [Suspect]
     Active Substance: ROPINIROLE HYDROCHLORIDE
     Dosage: 4 MG
  4. REQUIP PD 24 HOUR [Suspect]
     Active Substance: ROPINIROLE HYDROCHLORIDE
     Dosage: 6 MG
  5. AZILECT [Suspect]
     Active Substance: RASAGILINE MESYLATE
     Indication: PARKINSONISM
     Dosage: UNK
  6. REQUIP PD 24 HOUR [Suspect]
     Active Substance: ROPINIROLE HYDROCHLORIDE
     Indication: PARKINSONISM
     Dosage: 2 MG

REACTIONS (15)
  - Skin discolouration [Unknown]
  - Feeling hot [Unknown]
  - Chest discomfort [Unknown]
  - Pruritus [Unknown]
  - Blister [Unknown]
  - Off label use [Unknown]
  - Rash [Unknown]
  - Anger [Unknown]
  - Obsessive-compulsive disorder [Unknown]
  - Dry eye [Unknown]
  - Dry mouth [Unknown]
  - Livedo reticularis [Unknown]
  - Hallucination [Unknown]
  - Hypoaesthesia [Unknown]
  - Wrong technique in product usage process [Unknown]
